FAERS Safety Report 6782852-3 (Version None)
Quarter: 2010Q2

REPORT INFORMATION
  Report Type: 
  Country: None (occurrence: None)
  Receive Date: 20100617
  Receipt Date: 20100608
  Transmission Date: 20101027
  Serious: Yes (Hospitalization, Disabling)
  Sender: FDA-Public Use
  Company Number: US-GDP-10407959

PATIENT
  Sex: Female
  Weight: 73.5281 kg

DRUGS (6)
  1. ORACEA [Suspect]
     Indication: ROSACEA
     Dosage: 40MG QD, ORAL
     Route: 048
     Dates: start: 20090901, end: 20100125
  2. PRILOSEC [Concomitant]
  3. ALTACE [Concomitant]
  4. HYDROCHLOROTHIAZIDE [Concomitant]
  5. ZOCOR [Concomitant]
  6. ZETIA [Concomitant]

REACTIONS (14)
  - ANAEMIA HAEMOLYTIC AUTOIMMUNE [None]
  - ANTI-ERYTHROCYTE ANTIBODY POSITIVE [None]
  - BLOOD ALKALINE PHOSPHATASE INCREASED [None]
  - BLOOD GLUCOSE INCREASED [None]
  - BLOOD LACTATE DEHYDROGENASE INCREASED [None]
  - BLOOD SODIUM DECREASED [None]
  - CARDIAC MURMUR [None]
  - NECROSIS [None]
  - ORTHOSTATIC HYPOTENSION [None]
  - SERUM FERRITIN INCREASED [None]
  - UNEVALUABLE EVENT [None]
  - URINARY TRACT INFECTION [None]
  - UTERINE LEIOMYOMA [None]
  - UTERINE MASS [None]
